FAERS Safety Report 5571130-6 (Version None)
Quarter: 2007Q4

REPORT INFORMATION
  Report Type: 
  Country: None (occurrence: None)
  Receive Date: 20071221
  Receipt Date: 20071206
  Transmission Date: 20080405
  Serious: Yes (Other)
  Sender: FDA-Public Use
  Company Number: BR-TEVA-165193ISR

PATIENT
  Age: 61 Year
  Sex: Male

DRUGS (4)
  1. DOXORUBICIN HCL [Suspect]
  2. CYCLOPHOSPHAMIDE [Suspect]
  3. VINCRISTINE [Suspect]
  4. PREDNISONE [Suspect]

REACTIONS (1)
  - ESSENTIAL THROMBOCYTHAEMIA [None]
